FAERS Safety Report 16634135 (Version 1)
Quarter: 2019Q3

REPORT INFORMATION
  Report Type: Spontaneous
  Country: US (occurrence: US)
  Receive Date: 20190726
  Receipt Date: 20190726
  Transmission Date: 20191004
  Serious: No
  Sender: FDA-Public Use
  Company Number: US-SHIRE-US201923881

PATIENT
  Age: 10 Year
  Sex: Male

DRUGS (1)
  1. INTUNIV [Suspect]
     Active Substance: GUANFACINE HYDROCHLORIDE
     Indication: ANGER
     Dosage: UNK UNK, 1X/DAY:QD
     Route: 065

REACTIONS (11)
  - Flat affect [Unknown]
  - Somnolence [Unknown]
  - Off label use [Unknown]
  - Visual impairment [Unknown]
  - Gait disturbance [Unknown]
  - Fall [Unknown]
  - Depression [Unknown]
  - Thirst [Unknown]
  - Hypoacusis [Unknown]
  - Balance disorder [Unknown]
  - Fatigue [Unknown]

NARRATIVE: CASE EVENT DATE: 20190518
